FAERS Safety Report 5474623-5 (Version None)
Quarter: 2007Q3

REPORT INFORMATION
  Report Type: 
  Country: None (occurrence: None)
  Receive Date: 20070831
  Receipt Date: 20060821
  Transmission Date: 20080115
  Serious: No
  Sender: FDA-Public Use
  Company Number: 255344

PATIENT
  Age: 58 Year
  Sex: Female
  Weight: 54.4 kg

DRUGS (3)
  1. NOVOLIN 70/30 [Suspect]
     Indication: INSULIN-REQUIRING TYPE II DIABETES MELLITUS
     Dosage: 17 IU, QD, SUBCUTANEOUS, 25 IU, QD, SUBCUTANEOUS
     Route: 058
     Dates: start: 20010101, end: 20060501
  2. NOVOLIN 70/30 [Suspect]
     Indication: INSULIN-REQUIRING TYPE II DIABETES MELLITUS
     Dosage: 17 IU, QD, SUBCUTANEOUS, 25 IU, QD, SUBCUTANEOUS
     Route: 058
     Dates: start: 20060501, end: 20060630
  3. IMITREX [Concomitant]

REACTIONS (1)
  - BLOOD GLUCOSE FLUCTUATION [None]
